FAERS Safety Report 18692341 (Version 1)
Quarter: 2021Q1

REPORT INFORMATION
  Report Type: Spontaneous
  Country: US (occurrence: US)
  Receive Date: 20210103
  Receipt Date: 20210103
  Transmission Date: 20210419
  Serious: No
  Sender: FDA-Public Use
  Company Number: US-SPECGX-T202002140

PATIENT
  Sex: Female

DRUGS (1)
  1. BUPRENORPHINE/NALOXONE [Suspect]
     Active Substance: BUPRENORPHINE\NALOXONE
     Indication: DRUG USE DISORDER
     Dosage: UNK, (TWO AND A HALF PILL A DAY) (ONE IN MORNING AND ONE IN AFTER NOON)
     Route: 060

REACTIONS (2)
  - Incorrect route of product administration [Unknown]
  - Nausea [Unknown]
